FAERS Safety Report 21211675 (Version 1)
Quarter: 2022Q3

REPORT INFORMATION
  Report Type: Spontaneous
  Country: US (occurrence: None)
  Receive Date: 20220812
  Receipt Date: 20220812
  Transmission Date: 20221027
  Serious: No
  Sender: FDA-Public Use
  Company Number: None

PATIENT
  Age: 59 Year
  Sex: Male
  Weight: 103 kg

DRUGS (1)
  1. NIRMATRELVIR\RITONAVIR [Suspect]
     Active Substance: NIRMATRELVIR\RITONAVIR
     Indication: COVID-19
     Dosage: FREQUENCY : TWICE A DAY;?
     Route: 048
     Dates: start: 20220802, end: 20220804

REACTIONS (6)
  - Nausea [None]
  - Vomiting [None]
  - Malaise [None]
  - Insomnia [None]
  - Abdominal pain [None]
  - Anxiety [None]

NARRATIVE: CASE EVENT DATE: 20220804
